FAERS Safety Report 25047729 (Version 2)
Quarter: 2025Q1

REPORT INFORMATION
  Report Type: Spontaneous
  Country: TR (occurrence: TR)
  Receive Date: 20250306
  Receipt Date: 20250318
  Transmission Date: 20250408
  Serious: Yes (Other)
  Sender: PFIZER
  Company Number: TR-PFIZER INC-PV202500027110

PATIENT
  Age: 37 Year
  Sex: Male

DRUGS (1)
  1. ELREXFIO [Suspect]
     Active Substance: ELRANATAMAB-BCMM
     Indication: Plasma cell myeloma refractory

REACTIONS (3)
  - Ophthalmic herpes simplex [Recovering/Resolving]
  - Plasma cell myeloma refractory [Unknown]
  - Malignant neoplasm progression [Unknown]
